FAERS Safety Report 5135450-1 (Version None)
Quarter: 2006Q4

REPORT INFORMATION
  Report Type: 
  Country: None (occurrence: None)
  Receive Date: 20061026
  Receipt Date: 20061023
  Transmission Date: 20070319
  Serious: Yes (Other)
  Sender: FDA-Public Use
  Company Number: J200604475

PATIENT
  Age: 70 Year
  Sex: Male

DRUGS (2)
  1. SAWACILLIN [Suspect]
     Indication: DRUG USE FOR UNKNOWN INDICATION
     Route: 048
     Dates: start: 20060101, end: 20060101
  2. UNSPECIFIED MEDICATIONS [Suspect]
     Indication: DRUG USE FOR UNKNOWN INDICATION
     Route: 065

REACTIONS (2)
  - OCULOMUCOCUTANEOUS SYNDROME [None]
  - STEVENS-JOHNSON SYNDROME [None]
